FAERS Safety Report 5107969-0 (Version None)
Quarter: 2006Q3

REPORT INFORMATION
  Report Type: 
  Country: None (occurrence: None)
  Receive Date: 20060919
  Receipt Date: 20060908
  Transmission Date: 20061208
  Serious: Yes (Other)
  Sender: FDA-Public Use
  Company Number: US-JNJFOC-20060700376

PATIENT
  Sex: Female

DRUGS (5)
  1. REMICADE [Suspect]
     Route: 042
  2. REMICADE [Suspect]
     Route: 042
  3. REMICADE [Suspect]
     Indication: ARTHRITIS
     Route: 042
  4. PREDNISONE [Suspect]
     Indication: ARTHRITIS
  5. METHOTREXATE [Suspect]
     Indication: ARTHRITIS

REACTIONS (3)
  - BLINDNESS [None]
  - DEMYELINATION [None]
  - MULTIPLE SCLEROSIS [None]
